FAERS Safety Report 6531842-4 (Version None)
Quarter: 2009Q4

REPORT INFORMATION
  Report Type: 
  Country: None (occurrence: None)
  Receive Date: 20091224
  Receipt Date: 20090616
  Transmission Date: 20100525
  Serious: Yes (Other)
  Sender: FDA-Public Use
  Company Number: 09-AUR-10533

PATIENT

DRUGS (2)
  1. CITALOPRAM HYDROBROMIDE [Suspect]
     Dosage: 40MG, DAILY
  2. GABAPENTIN [Suspect]
     Indication: PAIN
     Dosage: 300-600MG, DAILY

REACTIONS (3)
  - BRADYCARDIA [None]
  - DEPRESSION [None]
  - TACHYCARDIA [None]
